FAERS Safety Report 19173169 (Version 1)
Quarter: 2021Q2

REPORT INFORMATION
  Report Type: Spontaneous
  Country: US (occurrence: US)
  Receive Date: 20210422
  Receipt Date: 20210422
  Transmission Date: 20210717
  Serious: No
  Sender: FDA-Public Use
  Company Number: None

PATIENT
  Age: 41 Year
  Sex: Female
  Weight: 56.7 kg

DRUGS (2)
  1. FLEXERIL [Concomitant]
     Active Substance: CYCLOBENZAPRINE HYDROCHLORIDE
  2. CLOTRIMAZOLE. [Suspect]
     Active Substance: CLOTRIMAZOLE
     Indication: CANDIDA INFECTION
     Dosage: ?          QUANTITY:50 TABLET(S);OTHER FREQUENCY:5 TIMES A DAY;?
     Route: 048
     Dates: start: 20210406, end: 20210409

REACTIONS (5)
  - Mouth swelling [None]
  - Swelling face [None]
  - Gingival swelling [None]
  - Lip swelling [None]
  - Lip exfoliation [None]

NARRATIVE: CASE EVENT DATE: 20210407
